APPROVED DRUG PRODUCT: OFEV
Active Ingredient: NINTEDANIB ESYLATE
Strength: EQ 100MG BASE
Dosage Form/Route: CAPSULE;ORAL
Application: N205832 | Product #001
Applicant: BOEHRINGER INGELHEIM PHARMACEUTICALS INC
Approved: Oct 15, 2014 | RLD: Yes | RS: No | Type: RX

PATENTS:
Patent 10154990 | Expires: Jan 8, 2026
Patent 9907756 | Expires: Jun 7, 2029
Patent 10105323 | Expires: Jun 4, 2029
Patent 6762180 | Expires: Oct 1, 2025
Patent 6762180*PED | Expires: Apr 1, 2026
Patent 9907756*PED | Expires: Dec 7, 2029
Patent 10105323*PED | Expires: Dec 4, 2029
Patent 10154990*PED | Expires: Jul 8, 2026

EXCLUSIVITY:
Code: ODE-261 | Date: Sep 6, 2026
Code: PED | Date: Mar 6, 2027